FAERS Safety Report 5032194-1 (Version None)
Quarter: 2006Q2

REPORT INFORMATION
  Report Type: 
  Country: None (occurrence: None)
  Receive Date: 20060619
  Receipt Date: 20060607
  Transmission Date: 20061013
  Serious: Yes (Hospitalization, Other)
  Sender: FDA-Public Use
  Company Number: 2005137634

PATIENT
  Age: 61 Year
  Sex: Male

DRUGS (1)
  1. CELEBREX [Suspect]
     Indication: ARTHRITIS
     Dosage: 200 MG (200 MG, 1 IN 1 D)
     Dates: start: 20040401

REACTIONS (10)
  - CARDIAC ARREST [None]
  - CARDIOVASCULAR DISORDER [None]
  - CHEST INJURY [None]
  - CHEST PAIN [None]
  - DIAPHRAGMATIC INJURY [None]
  - GUN SHOT WOUND [None]
  - LUNG INJURY [None]
  - NAUSEA [None]
  - THROMBOSIS [None]
  - TRANSIENT ISCHAEMIC ATTACK [None]
